APPROVED DRUG PRODUCT: THEOLAIR
Active Ingredient: THEOPHYLLINE
Strength: 125MG
Dosage Form/Route: TABLET;ORAL
Application: A086399 | Product #001
Applicant: MEDICIS PHARMACEUTICAL CORP
Approved: Approved Prior to Jan 1, 1982 | RLD: No | RS: No | Type: DISCN